FAERS Safety Report 6175776-6 (Version None)
Quarter: 2009Q2

REPORT INFORMATION
  Report Type: 
  Country: None (occurrence: None)
  Receive Date: 20090501
  Receipt Date: 20090424
  Transmission Date: 20091009
  Serious: Yes (Hospitalization)
  Sender: FDA-Public Use
  Company Number: US-AVENTIS-200913617US

PATIENT
  Age: 42 Year
  Sex: Female

DRUGS (3)
  1. LOVENOX [Suspect]
     Indication: ACUTE MYOCARDIAL INFARCTION
  2. INTEGRILIN [Suspect]
     Indication: ACUTE MYOCARDIAL INFARCTION
     Dosage: DOSE: UNK
  3. HEPARIN [Suspect]
     Indication: CORONARY ARTERY THROMBOSIS
     Dosage: DOSE: UNK

REACTIONS (5)
  - CORONARY ARTERY OCCLUSION [None]
  - CORONARY ARTERY THROMBOSIS [None]
  - DRUG INEFFECTIVE [None]
  - SHOCK [None]
  - UNEVALUABLE EVENT [None]
